FAERS Safety Report 7301242-8 (Version None)
Quarter: 2010Q4

REPORT INFORMATION
  Report Type: 
  Country: None (occurrence: None)
  Receive Date: 20101229
  Receipt Date: 20100927
  Transmission Date: 20110411
  Serious: No
  Sender: FDA-Public Use
  Company Number: 1000016475

PATIENT
  Age: 66 Year
  Sex: Female

DRUGS (4)
  1. BYSTOLIC [Suspect]
     Indication: HYPERTENSION
     Dosage: 5 MG (5 MG, 1 IN 1 D), ORAL
     Route: 048
     Dates: start: 20100924, end: 20100926
  2. CLONIDINE [Concomitant]
  3. PRILOSEC (OMEPRAZOLE) (OMEPRAZOLE) [Concomitant]
  4. GABAPENTIN (GABAPENTIN) (GABAPENTIN) [Concomitant]

REACTIONS (4)
  - AURA [None]
  - DIPLOPIA [None]
  - MIGRAINE [None]
  - VISION BLURRED [None]
